FAERS Safety Report 8936561 (Version 1)
Quarter: 2012Q4

REPORT INFORMATION
  Report Type: 
  Country: US (occurrence: US)
  Receive Date: 20121130
  Receipt Date: 20121130
  Transmission Date: 20130627
  Serious: Yes (Other)
  Sender: FDA-Public Use
  Company Number: US-PFIZER INC-2012297781

PATIENT
  Age: 54 Year
  Sex: Female
  Weight: 95 kg

DRUGS (10)
  1. LIPITOR [Suspect]
     Indication: HIGH CHOLESTEROL
     Dosage: 10 mg, daily
  2. LIPITOR [Suspect]
     Dosage: 80 mg, daily
  3. CADUET [Suspect]
     Indication: HIGH CHOLESTEROL
     Dosage: 10/40 mg, daily
  4. CADUET [Suspect]
     Indication: BLOOD PRESSURE HIGH
  5. NEXIUM [Concomitant]
     Indication: ACID REFLUX (ESOPHAGEAL)
     Dosage: 40 mg, daily
  6. LEVOTHYROXINE [Concomitant]
     Indication: THYROID DISORDER
     Dosage: 100 ug, daily
  7. TOPROL [Concomitant]
     Indication: BLOOD PRESSURE HIGH
     Dosage: 100mg by splitting in half, 2x/day
  8. CLONIDINE [Concomitant]
     Indication: BLOOD PRESSURE HIGH
     Dosage: 0.1 mg, 2x/day
  9. WELLBUTRIN [Concomitant]
     Indication: DEPRESSION
     Dosage: 450 mg, daily
  10. PROZAC [Concomitant]
     Indication: DEPRESSION
     Dosage: 20 mg, UNK

REACTIONS (8)
  - Peripheral nerve injury [Unknown]
  - Wrist fracture [Unknown]
  - Joint dislocation [Unknown]
  - Fibromyalgia [Unknown]
  - Asthenia [Not Recovered/Not Resolved]
  - Laboratory test abnormal [Unknown]
  - Myalgia [Not Recovered/Not Resolved]
  - Pain [Not Recovered/Not Resolved]
